FAERS Safety Report 18544748 (Version 1)
Quarter: 2020Q4

REPORT INFORMATION
  Report Type: Spontaneous
  Country: US (occurrence: US)
  Receive Date: 20201124
  Receipt Date: 20201124
  Transmission Date: 20210114
  Serious: Yes (Life-Threatening, Hospitalization, Other)
  Sender: FDA-Public Use
  Company Number: None

PATIENT
  Age: 9 Year
  Sex: Male
  Weight: 33 kg

DRUGS (5)
  1. GUANFACINE. [Concomitant]
     Active Substance: GUANFACINE
     Dates: start: 20200424
  2. CARBAMAZEPINE. [Suspect]
     Active Substance: CARBAMAZEPINE
     Indication: BEHAVIOURAL THERAPY
     Route: 048
     Dates: start: 20201028, end: 20201115
  3. AMPHETAMINE-DEXTROAMPHETAMINE [Concomitant]
     Active Substance: AMPHETAMINE SULFATE\DEXTROAMPHETAMINE
     Dates: start: 20200828
  4. RISPERIDONE. [Concomitant]
     Active Substance: RISPERIDONE
     Dates: start: 20201009
  5. ARIPIPRAZOLE. [Concomitant]
     Active Substance: ARIPIPRAZOLE
     Dates: start: 20200724

REACTIONS (4)
  - Oral disorder [None]
  - Conjunctival hyperaemia [None]
  - Rash erythematous [None]
  - Toxic epidermal necrolysis [None]

NARRATIVE: CASE EVENT DATE: 20201116
